FAERS Safety Report 14341645 (Version 1)
Quarter: 2018Q1

REPORT INFORMATION
  Report Type: Spontaneous
  Country: FR (occurrence: FR)
  Receive Date: 20180102
  Receipt Date: 20180102
  Transmission Date: 20180509
  Serious: Yes (Other)
  Sender: FDA-Public Use
  Company Number: FR-MERCK KGAA-2038147

PATIENT
  Age: 61 Year
  Sex: Female
  Weight: 62 kg

DRUGS (2)
  1. FEMARA [Concomitant]
     Active Substance: LETROZOLE
  2. NOVOTHYROX [Suspect]
     Active Substance: LEVOTHYROXINE SODIUM
     Indication: POST PROCEDURAL HYPOTHYROIDISM
     Dates: start: 20170727

REACTIONS (6)
  - Insomnia [None]
  - Fatigue [None]
  - Muscle spasms [None]
  - Alopecia [None]
  - Loss of personal independence in daily activities [None]
  - Vertigo [None]

NARRATIVE: CASE EVENT DATE: 2017
